FAERS Safety Report 13536026 (Version 2)
Quarter: 2017Q2

REPORT INFORMATION
  Report Type: Report from Study
  Country: DE (occurrence: DE)
  Receive Date: 20170511
  Receipt Date: 20170518
  Transmission Date: 20170830
  Serious: Yes (Death, Life-Threatening, Hospitalization)
  Sender: FDA-Public Use
  Company Number: DE-JNJFOC-20161221781

PATIENT
  Age: 66 Year
  Sex: Male
  Weight: 103 kg

DRUGS (3)
  1. XARELTO [Suspect]
     Active Substance: RIVAROXABAN
     Indication: ATRIAL FIBRILLATION
     Route: 048
  2. HEPARIN [Concomitant]
     Active Substance: HEPARIN SODIUM
     Route: 065
     Dates: start: 20161220
  3. CLEXANE [Concomitant]
     Active Substance: ENOXAPARIN SODIUM
     Route: 065

REACTIONS (7)
  - Nervous system disorder [Fatal]
  - Haemorrhage intracranial [Not Recovered/Not Resolved]
  - Lung infection [Fatal]
  - Subarachnoid haemorrhage [Not Recovered/Not Resolved]
  - Neck pain [Unknown]
  - Haemorrhage intracranial [Unknown]
  - Vomiting [Unknown]

NARRATIVE: CASE EVENT DATE: 20161219
